FAERS Safety Report 6422131-7 (Version None)
Quarter: 2009Q4

REPORT INFORMATION
  Report Type: 
  Country: None (occurrence: None)
  Receive Date: 20091030
  Receipt Date: 20091022
  Transmission Date: 20100525
  Serious: Yes (Death, Other)
  Sender: FDA-Public Use
  Company Number: US-TYCO HEALTHCARE/MALLINCKRODT-T200901959

PATIENT
  Sex: Male

DRUGS (5)
  1. OPTIMARK [Suspect]
     Indication: NUCLEAR MAGNETIC RESONANCE IMAGING
     Dosage: UNK
     Route: 042
     Dates: start: 20060416, end: 20060416
  2. MAGNEVIST [Suspect]
     Indication: NUCLEAR MAGNETIC RESONANCE IMAGING
     Dosage: UNK
     Dates: start: 20030116, end: 20030116
  3. MAGNEVIST [Suspect]
     Dosage: UNK
     Dates: start: 20060515, end: 20060515
  4. MAGNEVIST [Suspect]
     Dosage: UNK
     Dates: start: 20060517, end: 20060517
  5. MAGNEVIST [Suspect]
     Dosage: UNK
     Dates: start: 20060610, end: 20060610

REACTIONS (1)
  - NEPHROGENIC SYSTEMIC FIBROSIS [None]
